FAERS Safety Report 6994618-X (Version None)
Quarter: 2010Q3

REPORT INFORMATION
  Report Type: 
  Country: None (occurrence: None)
  Receive Date: 20100916
  Receipt Date: 20100916
  Transmission Date: 20110219
  Serious: Yes (Hospitalization)
  Sender: FDA-Public Use
  Company Number: None

PATIENT
  Age: 56 Year
  Sex: Male
  Weight: 78.563 kg

DRUGS (10)
  1. CARBOPLATIN [Suspect]
     Indication: HEAD AND NECK CANCER
     Dosage: 1.5 AUC/WKLY/IV
     Route: 042
     Dates: start: 20100825, end: 20100908
  2. TAXOL [Suspect]
     Indication: HEAD AND NECK CANCER
     Dosage: 30MG/M2/WKLY/IV
     Route: 042
     Dates: start: 20100825, end: 20100908
  3. PANITUMUMAB [Suspect]
     Indication: HEAD AND NECK CANCER
     Dosage: 2.5MG/KG/WKLY/IV
     Route: 042
     Dates: start: 20100825, end: 20100908
  4. RADIATION THERAPY [Suspect]
     Indication: HEAD AND NECK CANCER
     Dosage: 2GY/DAILY
     Dates: start: 20100823, end: 20100914
  5. ISOSOURCE [Concomitant]
  6. LACTULOSE [Concomitant]
  7. MIRACLE MOUTHWASH [Concomitant]
  8. NYSTATIN SWISH AND SWALLOW [Concomitant]
  9. OXYCODONE [Concomitant]
  10. OXYCONTIN [Concomitant]

REACTIONS (2)
  - MUCOSAL INFLAMMATION [None]
  - PYREXIA [None]
